FAERS Safety Report 9060648 (Version 4)
Quarter: 2014Q2

REPORT INFORMATION
  Report Type: Spontaneous
  Country: US (occurrence: US)
  Receive Date: 20130211
  Receipt Date: 20140506
  Transmission Date: 20141212
  Serious: Yes (Other)
  Sender: FDA-Public Use
  Company Number: US-009507513-1302USA002513

PATIENT
  Age: 13 Year
  Sex: Female

DRUGS (5)
  1. ROCURONIUM BROMIDE [Suspect]
     Indication: NEUROMUSCULAR BLOCKADE
     Dosage: 5 MG, UNK
  2. SEVOFLURANE [Concomitant]
  3. MIDAZOLAM [Concomitant]
     Indication: ANAESTHESIA
  4. PROPOFOL [Concomitant]
     Indication: ANAESTHESIA
  5. SUFENTANIL [Concomitant]
     Indication: ANAESTHESIA

REACTIONS (1)
  - Paraplegia [Recovered/Resolved]
